FAERS Safety Report 11287076 (Version 2)
Quarter: 2015Q4

REPORT INFORMATION
  Report Type: Spontaneous
  Country: JP (occurrence: JP)
  Receive Date: 20150721
  Receipt Date: 20151009
  Transmission Date: 20160304
  Serious: Yes (Hospitalization)
  Sender: FDA-Public Use
  Company Number: JP-BRISTOL-MYERS SQUIBB COMPANY-BMS-2015-048132

PATIENT
  Age: 54 Year
  Sex: Female

DRUGS (3)
  1. ABILIFY [Suspect]
     Active Substance: ARIPIPRAZOLE
     Indication: PSYCHOTIC DISORDER
     Dosage: 12 MG, QD
     Route: 048
     Dates: start: 20150701
  2. LULLAN [Concomitant]
     Active Substance: PEROSPIRONE HYDROCHLORIDE
     Indication: PRODUCT USED FOR UNKNOWN INDICATION
     Route: 065
  3. ABILIFY [Suspect]
     Active Substance: ARIPIPRAZOLE
     Dosage: 18 MG, QD
     Route: 048

REACTIONS (4)
  - Mania [Recovered/Resolved]
  - Drug ineffective [Unknown]
  - Treatment noncompliance [Unknown]
  - Off label use [Unknown]

NARRATIVE: CASE EVENT DATE: 20150708
